FAERS Safety Report 5514039-6 (Version None)
Quarter: 2007Q4

REPORT INFORMATION
  Report Type: 
  Country: None (occurrence: None)
  Receive Date: 20071113
  Receipt Date: 20071101
  Transmission Date: 20080405
  Serious: No
  Sender: FDA-Public Use
  Company Number: US-ELI_LILLY_AND_COMPANY-US200707003562

PATIENT
  Sex: Female

DRUGS (7)
  1. FORTEO [Suspect]
     Indication: OSTEOPOROSIS
     Dates: start: 20070521
  2. CALCIUM [Concomitant]
  3. VITAMINS NOS [Concomitant]
  4. OXYTROL /00538901/ [Concomitant]
     Indication: INCONTINENCE
  5. LEVOXYL [Concomitant]
     Indication: THYROID DISORDER
  6. TYLENOL /USA/ [Concomitant]
  7. MUCINEX [Concomitant]

REACTIONS (1)
  - NO ADVERSE EVENT [None]
